FAERS Safety Report 21943426 (Version 1)
Quarter: 2023Q1

REPORT INFORMATION
  Report Type: Spontaneous
  Country: US (occurrence: US)
  Receive Date: 20230202
  Receipt Date: 20230202
  Transmission Date: 20230418
  Serious: Yes (Hospitalization, Other)
  Sender: FDA-Public Use
  Company Number: US-Accord-298324

PATIENT
  Age: 82 Year
  Sex: Female

DRUGS (2)
  1. METHOTREXATE [Suspect]
     Active Substance: METHOTREXATE
     Indication: Psoriatic arthropathy
     Dosage: 20 MG/WEEK
  2. SECUKINUMAB [Concomitant]
     Active Substance: SECUKINUMAB
     Indication: Psoriatic arthropathy
     Dosage: 150 MG SUBCUTANEOUSLY ONCE EVERY FOUR WEEKS
     Route: 058

REACTIONS (7)
  - Pancytopenia [Recovered/Resolved]
  - Pleural effusion [Unknown]
  - Pneumonitis [Unknown]
  - Gingival bleeding [Unknown]
  - Dyspnoea [Unknown]
  - Urine output decreased [Unknown]
  - Off label use [Unknown]
